FAERS Safety Report 19641854 (Version 2)
Quarter: 2021Q4

REPORT INFORMATION
  Report Type: Report from Study
  Country: CL (occurrence: CL)
  Receive Date: 20210731
  Receipt Date: 20211112
  Transmission Date: 20220303
  Serious: Yes (Other)
  Sender: FDA-Public Use
  Company Number: CL-NOVARTISPH-PHHY2018CL199062

PATIENT
  Age: 36 Year
  Sex: Female

DRUGS (5)
  1. COSENTYX [Suspect]
     Active Substance: SECUKINUMAB
     Indication: Ankylosing spondylitis
     Dosage: 150 MG, (EVERY 15 DAYS)
     Route: 058
     Dates: start: 2016, end: 201810
  2. COSENTYX [Suspect]
     Active Substance: SECUKINUMAB
     Dosage: 150 MG, QMO
     Route: 058
     Dates: start: 20180701
  3. COSENTYX [Suspect]
     Active Substance: SECUKINUMAB
     Dosage: 150 MG
     Route: 058
     Dates: start: 20190621
  4. COSENTYX [Suspect]
     Active Substance: SECUKINUMAB
     Dosage: 150 MG, (EVERY 15 DAYS)
     Route: 058
     Dates: start: 20190708
  5. COSENTYX [Suspect]
     Active Substance: SECUKINUMAB
     Dosage: UNK, ONCE EVERY TWO WEEKS
     Route: 065

REACTIONS (12)
  - Cholelithiasis [Not Recovered/Not Resolved]
  - Ankylosing spondylitis [Unknown]
  - Pain [Recovering/Resolving]
  - Inflammation [Not Recovered/Not Resolved]
  - Obesity [Recovering/Resolving]
  - Weight increased [Unknown]
  - Weight decreased [Unknown]
  - Memory impairment [Unknown]
  - Dyspepsia [Not Recovered/Not Resolved]
  - Feeling abnormal [Unknown]
  - Discomfort [Not Recovered/Not Resolved]
  - Inappropriate schedule of product administration [Unknown]

NARRATIVE: CASE EVENT DATE: 20181001
